FAERS Safety Report 10646774 (Version 1)
Quarter: 2014Q4

REPORT INFORMATION
  Report Type: Spontaneous
  Country: CN (occurrence: CN)
  Receive Date: 20141211
  Receipt Date: 20141211
  Transmission Date: 20150529
  Serious: Yes (Death, Other)
  Sender: FDA-Public Use
  Company Number: PHHY2014CN157630

PATIENT
  Age: 27 Year
  Sex: Male

DRUGS (7)
  1. METHYLPREDNISOLONE. [Suspect]
     Active Substance: METHYLPREDNISOLONE
     Indication: PRODUCT USED FOR UNKNOWN INDICATION
     Dosage: 30 MG, BID
     Route: 042
  2. BUSULFAN [Suspect]
     Active Substance: BUSULFAN
     Indication: PROPHYLAXIS AGAINST GRAFT VERSUS HOST DISEASE
     Route: 065
  3. METHOTREXATE [Suspect]
     Active Substance: METHOTREXATE
     Indication: PROPHYLAXIS AGAINST GRAFT VERSUS HOST DISEASE
     Route: 065
  4. CYCLOPHOSPHAMIDE. [Suspect]
     Active Substance: CYCLOPHOSPHAMIDE
     Indication: PROPHYLAXIS AGAINST GRAFT VERSUS HOST DISEASE
     Route: 065
  5. MYCOPHENOLATE MOFETIL. [Suspect]
     Active Substance: MYCOPHENOLATE MOFETIL
     Indication: PROPHYLAXIS AGAINST GRAFT VERSUS HOST DISEASE
     Route: 065
  6. TIMOGLOBULINA//ANTITHYMOCYTE IMMUNOGLOBULIN (RABBIT) [Suspect]
     Active Substance: LAPINE T-LYMPHOCYTE IMMUNE GLOBULIN
     Indication: PROPHYLAXIS AGAINST GRAFT VERSUS HOST DISEASE
     Route: 065
  7. CICLOSPORIN [Suspect]
     Active Substance: CYCLOSPORINE
     Indication: PROPHYLAXIS AGAINST GRAFT VERSUS HOST DISEASE
     Route: 065

REACTIONS (26)
  - Central nervous system fungal infection [Fatal]
  - Central nervous system lesion [Fatal]
  - Red blood cell count decreased [Not Recovered/Not Resolved]
  - Bacteraemia [Unknown]
  - Fungal infection [Unknown]
  - Acute graft versus host disease [Unknown]
  - Therapeutic response decreased [Unknown]
  - Cytomegalovirus infection [Recovered/Resolved]
  - White blood cell count decreased [Not Recovered/Not Resolved]
  - Petit mal epilepsy [Recovering/Resolving]
  - Feeding disorder [Unknown]
  - Cerebral haemorrhage [Fatal]
  - Platelet count decreased [Not Recovered/Not Resolved]
  - Transplant failure [Unknown]
  - Pancytopenia [Not Recovered/Not Resolved]
  - Klebsiella infection [Unknown]
  - Chills [Unknown]
  - Haematochezia [Recovered/Resolved]
  - Pleural effusion [Recovering/Resolving]
  - Paraesthesia [Unknown]
  - Generalised tonic-clonic seizure [Recovering/Resolving]
  - Lung infection [Unknown]
  - Marrow hyperplasia [Recovered/Resolved]
  - Hypoaesthesia [Unknown]
  - Pyrexia [Recovering/Resolving]
  - Pruritus [Unknown]
